FAERS Safety Report 6575039-0 (Version None)
Quarter: 2010Q1

REPORT INFORMATION
  Report Type: 
  Country: None (occurrence: None)
  Receive Date: 20100201
  Receipt Date: 20100115
  Transmission Date: 20100710
  Serious: Yes (Hospitalization)
  Sender: FDA-Public Use
  Company Number: PAR_03330_2010

PATIENT
  Age: 77 Year
  Sex: Female
  Weight: 44 kg

DRUGS (10)
  1. ALPRAZOLAM [Suspect]
     Indication: DRUG USE FOR UNKNOWN INDICATION
     Dosage: 0.625 MG, DAILY ORAL
     Route: 048
     Dates: end: 20091107
  2. CAPTOPRIL [Suspect]
     Indication: DRUG USE FOR UNKNOWN INDICATION
     Dosage: 50 MG  BID ORAL
     Route: 048
     Dates: start: 20090801, end: 20091107
  3. CARBIDOPA-LEVODOPA [Suspect]
     Indication: PARKINSON'S DISEASE
     Dosage: 1 DF TID, 200-20 MG ORAL
     Route: 048
     Dates: end: 20091107
  4. HYDROCHLOROTHIAZIDE [Suspect]
     Indication: DRUG USE FOR UNKNOWN INDICATION
     Dosage: 25 MG BID ORAL
     Route: 048
     Dates: start: 20090801
  5. AMOXICILLIN W/CLAVULANATE POTASSIUM (CARBIDOPA/LEVODOPA) (NOT SPECIFIE [Suspect]
     Indication: DRUG USE FOR UNKNOWN INDICATION
     Dosage: 1000 MG TID ORAL
     Route: 048
     Dates: start: 20090801, end: 20091107
  6. PREDNISONE [Suspect]
     Indication: POLYARTERITIS NODOSA
     Dosage: 50 MG, DAILY, THEN DOSAGE PROGRESSIVELY DECREASED ORAL
     Route: 048
     Dates: start: 20090625, end: 20091107
  7. NEBIVOLOL HCL [Suspect]
     Indication: DRUG USE FOR UNKNOWN INDICATION
     Dosage: 5 MG, DAILY ORAL
     Route: 048
     Dates: end: 20091107
  8. OMEPRAZOLE [Suspect]
     Indication: DRUG USE FOR UNKNOWN INDICATION
     Dosage: 40 MG, DAILY ORAL
     Route: 048
     Dates: end: 20090801
  9. AMLODIPINE [Suspect]
     Indication: DRUG USE FOR UNKNOWN INDICATION
     Dosage: 5 MG, DAILY ORAL
     Route: 048
     Dates: end: 20091107
  10. MIRTAZAPINE [Suspect]
     Indication: DRUG USE FOR UNKNOWN INDICATION
     Dosage: 15 MG, DAILY ORAL
     Route: 048
     Dates: end: 20091107

REACTIONS (23)
  - ASTHENIA [None]
  - CELL DEATH [None]
  - CHOLESTASIS [None]
  - DECREASED APPETITE [None]
  - DYSKINESIA [None]
  - FALL [None]
  - HAEMOTHORAX [None]
  - HEPATIC ARTERY ANEURYSM [None]
  - HEPATIC HAEMATOMA [None]
  - HEPATIC LESION [None]
  - HEPATIC PAIN [None]
  - HEPATITIS CHOLESTATIC [None]
  - HEPATOMEGALY [None]
  - INFLAMMATION [None]
  - INJURY [None]
  - LOSS OF CONSCIOUSNESS [None]
  - MALAISE [None]
  - NAUSEA [None]
  - OEDEMA PERIPHERAL [None]
  - PALLOR [None]
  - POLYARTERITIS NODOSA [None]
  - RENAL ANEURYSM [None]
  - WEIGHT DECREASED [None]
